FAERS Safety Report 4528721-0 (Version None)
Quarter: 2004Q4

REPORT INFORMATION
  Report Type: 
  Country: None (occurrence: None)
  Receive Date: 20041202
  Receipt Date: 20041014
  Transmission Date: 20050328
  Serious: No
  Sender: FDA-Public Use
  Company Number: 200420846BWH

PATIENT
  Age: 54 Year
  Sex: Male
  Weight: 149.687 kg

DRUGS (10)
  1. LEVITRA [Suspect]
     Indication: ERECTILE DYSFUNCTION
     Dosage: 20 MG, ONCE, ORAL
     Route: 048
     Dates: start: 20040918
  2. GLUCOPHAGE [Concomitant]
  3. HUMALOG [Concomitant]
  4. NOVOLIN [Concomitant]
  5. AMARYL [Concomitant]
  6. ATENOLOL [Concomitant]
  7. COZAAR [Concomitant]
  8. NORVASC [Concomitant]
  9. HYDROCHLOROTHIAZIDE [Concomitant]
  10. MULTI-VITAMIN [Concomitant]

REACTIONS (5)
  - ERECTILE DYSFUNCTION [None]
  - ERECTION INCREASED [None]
  - FORMICATION [None]
  - PENIS DISORDER [None]
  - PRURITUS [None]
